FAERS Safety Report 14614900 (Version 1)
Quarter: 2018Q1

REPORT INFORMATION
  Report Type: Spontaneous
  Country: US (occurrence: US)
  Receive Date: 20180308
  Receipt Date: 20180308
  Transmission Date: 20180509
  Serious: No
  Sender: FDA-Public Use
  Company Number: US-LEXICON PHARMACEUTICALS, INC-18-1606-00256

PATIENT
  Sex: Male

DRUGS (1)
  1. TELOTRISTAT ETHYL [Suspect]
     Active Substance: TELOTRISTAT ETHYL
     Indication: SMALL INTESTINE CARCINOMA
     Route: 048
     Dates: start: 20180209

REACTIONS (2)
  - Flushing [Not Recovered/Not Resolved]
  - Blood glucose increased [Not Recovered/Not Resolved]
